FAERS Safety Report 4917037-6 (Version None)
Quarter: 2006Q1

REPORT INFORMATION
  Report Type: 
  Country: None (occurrence: None)
  Receive Date: 20060214
  Receipt Date: 20060130
  Transmission Date: 20060701
  Serious: Yes (Life-Threatening, Hospitalization)
  Sender: FDA-Public Use
  Company Number: 2006-00081FE

PATIENT
  Age: 56 Year
  Sex: Female

DRUGS (5)
  1. MINIRIN (MINIRIN ^FERRING^) (DESMOPRESSIN ACETATE) [Suspect]
     Indication: HYPOPITUITARISM
     Dosage: 1 TABLET (S) PO/IN
     Route: 045
     Dates: start: 19850101
  2. MINIRIN (MINIRIN ^FERRING^) (DESMOPRESSIN ACETATE) [Suspect]
     Indication: HYPOPITUITARISM
     Dosage: 1 TABLET (S) PO/IN
     Route: 045
     Dates: start: 19850101
  3. GENOTROPIN [Suspect]
     Indication: HYPOPITUITARISM
     Dosage: 0.7 MG
     Dates: start: 19980101
  4. HYDROCORTISONE [Suspect]
     Indication: HYPOPITUITARISM
     Dosage: 15 MG PO
     Route: 048
     Dates: start: 19850101
  5. LEVOTHYROXINE SODIUM [Concomitant]

REACTIONS (4)
  - ADRENOCORTICAL INSUFFICIENCY ACUTE [None]
  - DRUG INEFFECTIVE [None]
  - HYPONATRAEMIA [None]
  - INFECTION [None]
